FAERS Safety Report 6356577-2 (Version None)
Quarter: 2009Q3

REPORT INFORMATION
  Report Type: 
  Country: None (occurrence: None)
  Receive Date: 20090910
  Receipt Date: 20090910
  Transmission Date: 20100115
  Serious: Yes (Other)
  Sender: FDA-Public Use
  Company Number: None

PATIENT
  Age: 55 Year
  Sex: Male
  Weight: 131.0895 kg

DRUGS (1)
  1. FLUOXETINE HCL 20 MG UNK [Suspect]
     Indication: DEPRESSION
     Dosage: ONE DAILY PO
     Route: 048
     Dates: start: 20090811, end: 20090908

REACTIONS (15)
  - ABDOMINAL DISCOMFORT [None]
  - ARTHROPOD BITE [None]
  - ASTHENIA [None]
  - CONSTIPATION [None]
  - DYSPEPSIA [None]
  - DYSPHAGIA [None]
  - HYPOAESTHESIA ORAL [None]
  - NAUSEA [None]
  - NO THERAPEUTIC RESPONSE [None]
  - OEDEMA MOUTH [None]
  - OEDEMA PERIPHERAL [None]
  - PHARYNGEAL DISORDER [None]
  - PRURITUS [None]
  - URTICARIA [None]
  - VOMITING [None]
